FAERS Safety Report 17975520 (Version 3)
Quarter: 2020Q3

REPORT INFORMATION
  Report Type: Report from Study
  Country: BE (occurrence: BE)
  Receive Date: 20200702
  Receipt Date: 20200803
  Transmission Date: 20201103
  Serious: Yes (Hospitalization, Other)
  Sender: FDA-Public Use
  Company Number: BE-BAYER-2020-107638

PATIENT
  Sex: Female

DRUGS (5)
  1. BURINEX [Concomitant]
     Active Substance: BUMETANIDE
     Dosage: UNK
     Dates: start: 202006
  2. ALDACTONE [Concomitant]
     Active Substance: SPIRONOLACTONE
     Dosage: 50 MG
     Dates: start: 202006
  3. STIVARGA [Suspect]
     Active Substance: REGORAFENIB
     Indication: HEPATOCELLULAR CARCINOMA
     Dosage: DAILY DOSE 80 MG
     Dates: start: 20200524, end: 20200623
  4. DUROGESIC [Concomitant]
     Active Substance: FENTANYL
     Indication: PAIN
     Dosage: 12,5 MCG
     Dates: start: 202007
  5. DIFLUCAN [Concomitant]
     Active Substance: FLUCONAZOLE
     Indication: FUNGAL INFECTION
     Dosage: UNK
     Dates: start: 202006

REACTIONS (13)
  - Constipation [Recovering/Resolving]
  - Fatigue [Recovering/Resolving]
  - Frequent bowel movements [Recovering/Resolving]
  - Haematochezia [Recovered/Resolved]
  - Hospitalisation [None]
  - Anorectal discomfort [Not Recovered/Not Resolved]
  - Poor quality sleep [Not Recovered/Not Resolved]
  - Abdominal distension [None]
  - Palmar-plantar erythrodysaesthesia syndrome [Recovering/Resolving]
  - Off label use [None]
  - Weight increased [None]
  - Dry mouth [None]
  - Nausea [Recovering/Resolving]

NARRATIVE: CASE EVENT DATE: 202005
